FAERS Safety Report 14574262 (Version 1)
Quarter: 2018Q1

REPORT INFORMATION
  Report Type: Spontaneous
  Country: US (occurrence: US)
  Receive Date: 20180226
  Receipt Date: 20180226
  Transmission Date: 20180509
  Serious: No
  Sender: FDA-Public Use
  Company Number: US-JNJFOC-20180122856

PATIENT
  Sex: Female
  Weight: 81.65 kg

DRUGS (2)
  1. GABAPENTIN. [Concomitant]
     Active Substance: GABAPENTIN
     Indication: PRODUCT USED FOR UNKNOWN INDICATION
  2. TREMFYA [Suspect]
     Active Substance: GUSELKUMAB
     Indication: JUVENILE PSORIATIC ARTHRITIS
     Route: 058

REACTIONS (2)
  - Multiple allergies [Unknown]
  - Product use in unapproved indication [Unknown]
